FAERS Safety Report 7686651-X (Version None)
Quarter: 2011Q3

REPORT INFORMATION
  Report Type: 
  Country: None (occurrence: None)
  Receive Date: 20110816
  Receipt Date: 20110816
  Transmission Date: 20111222
  Serious: Yes (Life-Threatening, Hospitalization)
  Sender: FDA-Public Use
  Company Number: None

PATIENT
  Age: 38 Year
  Sex: Male
  Weight: 95 kg

DRUGS (2)
  1. ACETAMINOPHEN [Suspect]
     Indication: HEADACHE
     Dosage: APPROX 20GMS
     Route: 048
     Dates: start: 20110807, end: 20110807
  2. ACETAMINOPHEN [Suspect]
     Indication: BODY TEMPERATURE INCREASED
     Dosage: APPROX 20GMS
     Route: 048
     Dates: start: 20110807, end: 20110807

REACTIONS (3)
  - INTENTIONAL OVERDOSE [None]
  - NAUSEA [None]
  - SUICIDE ATTEMPT [None]
